FAERS Safety Report 6382361-X (Version None)
Quarter: 2009Q3

REPORT INFORMATION
  Report Type: 
  Country: None (occurrence: None)
  Receive Date: 20090925
  Receipt Date: 20090914
  Transmission Date: 20100115
  Serious: Yes (Other)
  Sender: FDA-Public Use
  Company Number: 230874J09USA

PATIENT
  Age: 60 Year
  Sex: Female

DRUGS (7)
  1. REBIF [Suspect]
     Indication: MULTIPLE SCLEROSIS
     Dosage: 44 MCG, 3 IN 1 WEEKS, SUBCUTANEOUS
     Route: 058
     Dates: start: 20090430
  2. VERAPMAIL XR (VERAPAMIL /00014301/) [Concomitant]
  3. METOPROLOL (METOPROLOL /00376901/) [Concomitant]
  4. DIOVAN/HCTZ (CO-DIOVAN) [Concomitant]
  5. CLONIDINE [Concomitant]
  6. BACLOFEN [Concomitant]
  7. CALCIUM (CACLIUM-SANDOZ /00009901/) [Concomitant]

REACTIONS (3)
  - FATIGUE [None]
  - GOITRE [None]
  - THYROID NEOPLASM [None]
